FAERS Safety Report 24213188 (Version 1)
Quarter: 2024Q3

REPORT INFORMATION
  Report Type: Spontaneous
  Country: US (occurrence: None)
  Receive Date: 20240814
  Receipt Date: 20240814
  Transmission Date: 20241017
  Serious: Yes (Other)
  Sender: Public
  Company Number: None

PATIENT
  Age: 69 Year
  Sex: Male

DRUGS (1)
  1. LENALIDOMIDE [Suspect]
     Active Substance: LENALIDOMIDE
     Indication: Plasma cell myeloma
     Dosage: FREQUENCY : DAILY;?
     Route: 048
     Dates: start: 20220616

REACTIONS (5)
  - Bone pain [None]
  - Arthralgia [None]
  - Muscle spasms [None]
  - Muscle spasms [None]
  - Therapy change [None]

NARRATIVE: CASE EVENT DATE: 20240814
